FAERS Safety Report 17862416 (Version 1)
Quarter: 2020Q2

REPORT INFORMATION
  Report Type: Spontaneous
  Country: ES (occurrence: ES)
  Receive Date: 20200604
  Receipt Date: 20200604
  Transmission Date: 20200714
  Serious: Yes (Death, Other)
  Sender: FDA-Public Use
  Company Number: ES-009507513-2005ESP010054

PATIENT
  Age: 87 Year
  Sex: Male
  Weight: 56 kg

DRUGS (1)
  1. ZINPLAVA [Suspect]
     Active Substance: BEZLOTOXUMAB
     Indication: CLOSTRIDIUM DIFFICILE INFECTION
     Dosage: 10 MILLIGRAM/KILOGRAM
     Dates: start: 20200513

REACTIONS (4)
  - Cardio-respiratory arrest [Fatal]
  - Disseminated intravascular coagulation [Fatal]
  - Product use in unapproved indication [Unknown]
  - Pancreatitis acute [Fatal]

NARRATIVE: CASE EVENT DATE: 20200513
